FAERS Safety Report 19602016 (Version 1)
Quarter: 2021Q3

REPORT INFORMATION
  Report Type: Spontaneous
  Country: IT (occurrence: IT)
  Receive Date: 20210723
  Receipt Date: 20210723
  Transmission Date: 20211014
  Serious: Yes (Other)
  Sender: FDA-Public Use
  Company Number: IT-DRREDDYS-SPO/ITL/21/0137858

PATIENT
  Age: 35 Year
  Sex: Male

DRUGS (5)
  1. CIPROFLOXACIN. [Interacting]
     Active Substance: CIPROFLOXACIN
     Indication: EPIDIDYMITIS
  2. REAGILA [Interacting]
     Active Substance: CARIPRAZINE
     Indication: DEPRESSION
  3. REAGILA [Interacting]
     Active Substance: CARIPRAZINE
     Indication: OFF LABEL USE
  4. LEVOFLOXACIN. [Interacting]
     Active Substance: LEVOFLOXACIN
     Indication: EPIDIDYMITIS
  5. IBUPROFEN. [Suspect]
     Active Substance: IBUPROFEN
     Indication: EPIDIDYMITIS

REACTIONS (4)
  - Epididymitis [Unknown]
  - Drug ineffective [Not Recovered/Not Resolved]
  - Drug interaction [Recovered/Resolved]
  - Off label use [Not Recovered/Not Resolved]
